FAERS Safety Report 4367227-9 (Version None)
Quarter: 2004Q2

REPORT INFORMATION
  Report Type: 
  Country: None (occurrence: None)
  Receive Date: 20040526
  Receipt Date: 20040507
  Transmission Date: 20050107
  Serious: Yes (Hospitalization)
  Sender: FDA-Public Use
  Company Number: 129915

PATIENT
  Age: 55 Year
  Sex: Female
  Weight: 63.5036 kg

DRUGS (4)
  1. AVONEX [Suspect]
     Indication: MULTIPLE SCLEROSIS
     Dosage: 30 MCG QW IM
     Route: 030
     Dates: start: 19981201
  2. AVONEX [Suspect]
     Indication: MULTIPLE SCLEROSIS
     Dosage: 30 MCG QW IM
     Route: 030
  3. BACLOFEN [Concomitant]
  4. AMINOPYRIDINE [Concomitant]

REACTIONS (5)
  - BLOOD POTASSIUM DECREASED [None]
  - INFLUENZA [None]
  - MUSCLE SPASTICITY [None]
  - NEPHROLITHIASIS [None]
  - URINARY TRACT INFECTION [None]
